FAERS Safety Report 6695072-8 (Version None)
Quarter: 2010Q2

REPORT INFORMATION
  Report Type: 
  Country: None (occurrence: None)
  Receive Date: 20100421
  Receipt Date: 20100412
  Transmission Date: 20101027
  Serious: Yes (Life-Threatening)
  Sender: FDA-Public Use
  Company Number: 2010SP021037

PATIENT
  Age: 70 Year
  Sex: Male

DRUGS (3)
  1. MIRTAZAPINE [Suspect]
     Indication: DEPRESSION
     Dosage: ;QD;PO
     Route: 048
  2. PAROXETINE HYDROCHLORIDE [Concomitant]
  3. TETRAMIDE [Concomitant]

REACTIONS (7)
  - CARDIO-RESPIRATORY ARREST [None]
  - COMPLETED SUICIDE [None]
  - DEMENTIA [None]
  - DEPRESSION [None]
  - DISEASE RECURRENCE [None]
  - EMOTIONAL DISTRESS [None]
  - NO THERAPEUTIC RESPONSE [None]
